FAERS Safety Report 9828277 (Version 1)
Quarter: 2014Q1

REPORT INFORMATION
  Report Type: Spontaneous
  Country: US (occurrence: US)
  Receive Date: 20140117
  Receipt Date: 20140117
  Transmission Date: 20141002
  Serious: Yes (Other)
  Sender: FDA-Public Use
  Company Number: US-BAYER-2014-007349

PATIENT
  Age: 50 Year
  Sex: Female
  Weight: 110.2 kg

DRUGS (5)
  1. YAZ [Suspect]
     Dosage: UNK
  2. TRIAMTERENE AND HYDROCHLOROTHIAZIDE [Concomitant]
     Dosage: 25/37.5 MILLIGRAMS DAILY
     Route: 048
  3. PULMICORT [Concomitant]
     Dosage: 180 DAILY, INHALATION
     Route: 045
  4. NASONEX [Concomitant]
     Dosage: 1 SPRAY DAILY
     Route: 045
  5. ZYRTEC [Concomitant]
     Dosage: 10 MG, DAILY
     Route: 048

REACTIONS (1)
  - Deep vein thrombosis [Recovered/Resolved]
